FAERS Safety Report 13154650 (Version 1)
Quarter: 2017Q1

REPORT INFORMATION
  Report Type: Spontaneous
  Country: US (occurrence: US)
  Receive Date: 20170124
  Receipt Date: 20170124
  Transmission Date: 20170428
  Serious: No
  Sender: FDA-Public Use
  Company Number: None

PATIENT
  Age: 90 Year
  Sex: Female

DRUGS (3)
  1. CEPHALEXIN. [Suspect]
     Active Substance: CEPHALEXIN
     Indication: INFECTION
     Route: 048
     Dates: start: 20161213, end: 20161218
  2. CALCIUM [Concomitant]
     Active Substance: CALCIUM
  3. MVI [Concomitant]
     Active Substance: VITAMINS

REACTIONS (1)
  - Rash [None]

NARRATIVE: CASE EVENT DATE: 20161213
